FAERS Safety Report 15685776 (Version 1)
Quarter: 2018Q4

REPORT INFORMATION
  Report Type: Report from Study
  Country: US (occurrence: US)
  Receive Date: 20181204
  Receipt Date: 20181204
  Transmission Date: 20190205
  Serious: Yes (Hospitalization)
  Sender: FDA-Public Use
  Company Number: US-SAKK-2018SA326780AA

PATIENT
  Age: 56 Year
  Sex: Female

DRUGS (1)
  1. ALEMTUZUMAB [Suspect]
     Active Substance: ALEMTUZUMAB
     Indication: MULTIPLE SCLEROSIS
     Dosage: 12 MG, QD
     Route: 041
     Dates: start: 20180723, end: 20180725

REACTIONS (11)
  - Product use issue [Recovering/Resolving]
  - Polyp [Unknown]
  - Upper respiratory tract infection [Not Recovered/Not Resolved]
  - Diverticulum [Unknown]
  - Fall [Recovered/Resolved]
  - Joint injury [Unknown]
  - Speech disorder [Not Recovered/Not Resolved]
  - Arthralgia [Unknown]
  - Dysphagia [Not Recovered/Not Resolved]
  - Dysarthria [Not Recovered/Not Resolved]
  - Gastrooesophageal reflux disease [Unknown]

NARRATIVE: CASE EVENT DATE: 201811
